FAERS Safety Report 4635348-9 (Version None)
Quarter: 2005Q2

REPORT INFORMATION
  Report Type: 
  Country: None (occurrence: None)
  Receive Date: 20050411
  Receipt Date: 20050329
  Transmission Date: 20051028
  Serious: Yes (Disabling)
  Sender: FDA-Public Use
  Company Number: 2005-03-0004

PATIENT
  Age: 69 Year
  Sex: Female

DRUGS (8)
  1. BECLOMETHASONE DIPROPIONATE [Suspect]
     Indication: DYSPNOEA
     Dosage: 200MCG BID INHALATION
     Route: 055
  2. BECLOMETHASONE DIPROPIONATE [Suspect]
     Indication: WHEEZING
     Dosage: 200MCG BID INHALATION
     Route: 055
  3. AMOXICILLIN [Suspect]
     Indication: URINARY TRACT INFECTION
     Dosage: 500MG TID INTRAVENOUS
     Route: 042
     Dates: start: 20050216, end: 20050223
  4. GABAPENTIN [Concomitant]
  5. KLIOFEM [Concomitant]
  6. BUPRENORPHINE [Concomitant]
  7. CALCICHEW-D3 [Concomitant]
  8. SALBUTAMOL [Concomitant]

REACTIONS (1)
  - ORAL CANDIDIASIS [None]
